FAERS Safety Report 23652148 (Version 2)
Quarter: 2024Q2

REPORT INFORMATION
  Report Type: Spontaneous
  Country: DE (occurrence: DE)
  Receive Date: 20240320
  Receipt Date: 20240613
  Transmission Date: 20240716
  Serious: Yes (Other)
  Sender: FDA-Public Use
  Company Number: DE-ALKEM LABORATORIES LIMITED-DE-ALKEM-2023-16611

PATIENT
  Age: 57 Year
  Sex: Male

DRUGS (5)
  1. EVEROLIMUS [Suspect]
     Active Substance: EVEROLIMUS
     Indication: Hodgkin^s disease
     Dosage: 15 MILLIGRAM, QD
     Route: 048
  2. DEXAMETHASONE [Concomitant]
     Active Substance: DEXAMETHASONE
     Indication: Hodgkin^s disease
     Dosage: 0.5 MILLIGRAM, QD
     Route: 048
  3. ETORICOXIB [Concomitant]
     Active Substance: ETORICOXIB
     Indication: Hodgkin^s disease
     Dosage: 60 MILLIGRAM, QD
     Route: 048
  4. PIOGLITAZONE [Concomitant]
     Active Substance: PIOGLITAZONE
     Indication: Hodgkin^s disease
     Dosage: 45 MILLIGRAM, QD
     Route: 048
  5. TREOSULFAN [Concomitant]
     Active Substance: TREOSULFAN
     Indication: Hodgkin^s disease
     Dosage: 250 MILLIGRAM, QD, LOW-DOSE
     Route: 048

REACTIONS (3)
  - Pneumonitis chemical [Recovered/Resolved]
  - Off label use [Unknown]
  - Lung infiltration [Recovered/Resolved]
